FAERS Safety Report 16880599 (Version 2)
Quarter: 2019Q4

REPORT INFORMATION
  Report Type: Report from Study
  Country: US (occurrence: US)
  Receive Date: 20191003
  Receipt Date: 20191106
  Transmission Date: 20200122
  Serious: Yes (Hospitalization, Other)
  Sender: FDA-Public Use
  Company Number: US-ROCHE-2416332

PATIENT
  Age: 32 Year
  Sex: Male
  Weight: 59 kg

DRUGS (11)
  1. VENTOLIN HFA [Concomitant]
     Active Substance: ALBUTEROL SULFATE
     Route: 065
  2. DRISDOL [Concomitant]
     Active Substance: ERGOCALCIFEROL
     Dosage: 50,000 UNIT
     Route: 065
  3. MEPRON [Concomitant]
     Active Substance: ATOVAQUONE
     Dosage: 750 MG/ 5 ML
     Route: 065
  4. HYDRODIURIL [Concomitant]
     Active Substance: HYDROCHLOROTHIAZIDE
     Route: 065
  5. ZYRTEC [Concomitant]
     Active Substance: CETIRIZINE HYDROCHLORIDE
     Route: 065
  6. ADVAIR HFA [Concomitant]
     Active Substance: FLUTICASONE PROPIONATE\SALMETEROL XINAFOATE
     Dosage: 250-50 MCG/DOSE DISK INHALER
     Route: 065
  7. GLUCAGON RECOMBINANT [Concomitant]
     Active Substance: GLUCAGON
     Route: 065
  8. PROVENTIL HFA [SALBUTAMOL] [Concomitant]
     Route: 065
  9. CALCIUM CARBONATE. [Concomitant]
     Active Substance: CALCIUM CARBONATE
     Dosage: 1250 MG (500 MG CA)
     Route: 065
  10. ESOMEPRAZOLE. [Concomitant]
     Active Substance: ESOMEPRAZOLE MAGNESIUM
     Dosage: DELAYED RELEASE CAPSULE
     Route: 065
  11. PIRFENIDONE. [Suspect]
     Active Substance: PIRFENIDONE
     Indication: COMPLICATIONS OF TRANSPLANTED LUNG
     Dosage: DAYS 1 THROUGH 7, 267 MG THREE TIMES DAILY; DAYS 8 THROUGH 14, 534 MG THREE TIMES DAILY; DAYS 15 THR
     Route: 048
     Dates: start: 20190523, end: 20190917

REACTIONS (4)
  - Muscle fatigue [Unknown]
  - Paranasal sinus discomfort [Unknown]
  - Dehydration [Unknown]
  - Seizure [Recovered/Resolved]

NARRATIVE: CASE EVENT DATE: 20190917
